FAERS Safety Report 7038563-2 (Version None)
Quarter: 2010Q4

REPORT INFORMATION
  Report Type: 
  Country: None (occurrence: None)
  Receive Date: 20101011
  Receipt Date: 20100629
  Transmission Date: 20110411
  Serious: No
  Sender: FDA-Public Use
  Company Number: US-PFIZER INC-2010069111

PATIENT
  Age: 79 Year
  Sex: Male
  Weight: 68.934 kg

DRUGS (6)
  1. NEURONTIN [Suspect]
     Indication: NEUROPATHY PERIPHERAL
     Dosage: UNK
     Dates: start: 20070101
  2. NEURONTIN [Suspect]
     Dosage: 300 MG, UNK
     Route: 048
     Dates: start: 20100501
  3. GABAPENTIN [Suspect]
     Dosage: UNK
  4. ZOCOR [Concomitant]
     Indication: CARDIAC DISORDER
     Dosage: UNK
  5. ACCUPRIL [Concomitant]
     Indication: CARDIAC DISORDER
     Dosage: UNK
  6. ALPRAZOLAM [Concomitant]
     Indication: INSOMNIA
     Dosage: UNK

REACTIONS (1)
  - MUSCULAR WEAKNESS [None]
